FAERS Safety Report 11690660 (Version 1)
Quarter: 2015Q4

REPORT INFORMATION
  Report Type: Spontaneous
  Country: US (occurrence: US)
  Receive Date: 20151102
  Receipt Date: 20151102
  Transmission Date: 20160304
  Serious: No
  Sender: FDA-Public Use
  Company Number: US-CELGENEUS-USA-2015103731

PATIENT
  Sex: Female
  Weight: 62.65 kg

DRUGS (2)
  1. POMALYST [Suspect]
     Active Substance: POMALIDOMIDE
     Indication: AMYLOIDOSIS
     Route: 048
     Dates: start: 201404
  2. POMALYST [Suspect]
     Active Substance: POMALIDOMIDE
     Route: 048
     Dates: start: 20150514

REACTIONS (7)
  - Infection [Unknown]
  - Decreased appetite [Unknown]
  - Skin mass [Unknown]
  - Feeling abnormal [Unknown]
  - Tremor [Unknown]
  - Chills [Unknown]
  - Peripheral swelling [Unknown]
